FAERS Safety Report 20087702 (Version 1)
Quarter: 2021Q4

REPORT INFORMATION
  Report Type: Spontaneous
  Country: GB (occurrence: GB)
  Receive Date: 20211118
  Receipt Date: 20211118
  Transmission Date: 20220303
  Serious: Yes (Other)
  Sender: FDA-Public Use
  Company Number: GB-OTSUKA-US-2015-11285

PATIENT
  Sex: Male

DRUGS (1)
  1. ABILIFY MAINTENA [Suspect]
     Active Substance: ARIPIPRAZOLE
     Indication: Schizophrenia
     Dosage: 400 MG, QM
     Route: 030
     Dates: start: 201406

REACTIONS (3)
  - Hallucination, auditory [Not Recovered/Not Resolved]
  - Schizophrenia [Not Recovered/Not Resolved]
  - Hallucination [Not Recovered/Not Resolved]
